FAERS Safety Report 20308886 (Version 1)
Quarter: 2022Q1

REPORT INFORMATION
  Report Type: Report from Study
  Country: TR (occurrence: TR)
  Receive Date: 20220107
  Receipt Date: 20220107
  Transmission Date: 20220423
  Serious: Yes (Death, Hospitalization)
  Sender: FDA-Public Use
  Company Number: TR-ABBVIE-22K-161-4223751-00

PATIENT
  Sex: Male

DRUGS (3)
  1. CARBIDOPA\LEVODOPA [Suspect]
     Active Substance: CARBIDOPA\LEVODOPA
     Indication: Parkinson^s disease
     Dosage: MORNING DOSE (ML): 5.30 CONTINUOUS DOSE (ML): 1.80 EXTRA DOSE (ML): 0.60
     Route: 050
     Dates: start: 20151210
  2. CARBIDOPA\LEVODOPA [Suspect]
     Active Substance: CARBIDOPA\LEVODOPA
  3. BENSERAZIDE HYDROCHLORIDE\LEVODOPA [Concomitant]
     Active Substance: BENSERAZIDE HYDROCHLORIDE\LEVODOPA
     Indication: Parkinson^s disease
     Route: 048

REACTIONS (5)
  - Cardiac arrest [Fatal]
  - General physical health deterioration [Unknown]
  - Diabetes mellitus [Unknown]
  - Renal impairment [Unknown]
  - Hypertension [Unknown]

NARRATIVE: CASE EVENT DATE: 20211226
